FAERS Safety Report 11060649 (Version 3)
Quarter: 2015Q4

REPORT INFORMATION
  Report Type: Report from Study
  Country: SE (occurrence: SE)
  Receive Date: 20150423
  Receipt Date: 20151124
  Transmission Date: 20160304
  Serious: Yes (Other)
  Sender: FDA-Public Use
  Company Number: PHHY2015SE007154

PATIENT
  Age: 46 Year
  Sex: Female

DRUGS (1)
  1. AFINITOR [Suspect]
     Active Substance: EVEROLIMUS
     Indication: BREAST CANCER METASTATIC
     Dosage: 10 MG, QD
     Route: 065
     Dates: start: 201412, end: 201504

REACTIONS (6)
  - Scab [Recovering/Resolving]
  - Epistaxis [Recovering/Resolving]
  - Nasal dryness [Recovering/Resolving]
  - Nasal discomfort [Recovering/Resolving]
  - Pain [Not Recovered/Not Resolved]
  - Nasal mucosal ulcer [Recovering/Resolving]

NARRATIVE: CASE EVENT DATE: 201501
